FAERS Safety Report 20490629 (Version 2)
Quarter: 2022Q3

REPORT INFORMATION
  Report Type: Report from Study
  Country: DE (occurrence: DE)
  Receive Date: 20220218
  Receipt Date: 20220809
  Transmission Date: 20221026
  Serious: Yes (Hospitalization)
  Sender: FDA-Public Use
  Company Number: DE-ABBVIE-22K-062-4283522-00

PATIENT
  Age: 58 Year
  Sex: Male

DRUGS (1)
  1. RINVOQ [Suspect]
     Active Substance: UPADACITINIB
     Indication: Rheumatoid arthritis
     Route: 048
     Dates: start: 202003

REACTIONS (5)
  - Large intestine polyp [Recovered/Resolved]
  - Reactive gastropathy [Recovered/Resolved]
  - Benign prostatic hyperplasia [Unknown]
  - Influenza like illness [Unknown]
  - Muscle strain [Unknown]

NARRATIVE: CASE EVENT DATE: 20201115
